FAERS Safety Report 15144606 (Version 2)
Quarter: 2018Q4

REPORT INFORMATION
  Report Type: Report from Study
  Country: US (occurrence: US)
  Receive Date: 20180713
  Receipt Date: 20181026
  Transmission Date: 20190204
  Serious: Yes (Other)
  Sender: FDA-Public Use
  Company Number: US-TEVA-2018-US-923169

PATIENT
  Sex: Female

DRUGS (2)
  1. CLARAVIS [Suspect]
     Active Substance: ISOTRETINOIN
     Dosage: 60.7 MILLIGRAM DAILY;
     Route: 065
     Dates: start: 20171221, end: 201804
  2. IUD NOS [Suspect]
     Active Substance: COPPER OR LEVONORGESTREL
     Route: 065

REACTIONS (1)
  - Unintended pregnancy [Unknown]
